FAERS Safety Report 24651591 (Version 1)
Quarter: 2024Q4

REPORT INFORMATION
  Report Type: Spontaneous
  Country: DE (occurrence: DE)
  Receive Date: 20241122
  Receipt Date: 20241122
  Transmission Date: 20250115
  Serious: Yes (Hospitalization)
  Sender: BAUSCH AND LOMB
  Company Number: DE-NORGINE LIMITED-NOR202403208

PATIENT
  Sex: Male

DRUGS (1)
  1. PLENVU [Suspect]
     Active Substance: ASCORBIC ACID\POLYETHYLENE GLYCOL 3350\POTASSIUM CHLORIDE\SODIUM ASCORBATE\SODIUM CHLORIDE\SODIUM SU
     Indication: Product used for unknown indication
     Dosage: TOOK PLENVU DOSE 1 WITH A DELAY OF 5 HOURS
     Route: 065
     Dates: start: 20241113

REACTIONS (2)
  - Hospitalisation [Unknown]
  - Inappropriate schedule of product administration [Unknown]

NARRATIVE: CASE EVENT DATE: 20241113
